FAERS Safety Report 8160384-8 (Version None)
Quarter: 2012Q1

REPORT INFORMATION
  Report Type: 
  Country: None (occurrence: None)
  Receive Date: 20120223
  Receipt Date: 20120213
  Transmission Date: 20120608
  Serious: Yes (Death)
  Sender: FDA-Public Use
  Company Number: RU-JNJFOC-20120207168

PATIENT
  Age: 65 Year
  Sex: Male

DRUGS (12)
  1. TRENTAL [Concomitant]
  2. RINGERS SOLUTION [Concomitant]
  3. DEXTROSE [Concomitant]
  4. XARELTO [Suspect]
     Route: 048
     Dates: start: 20120211, end: 20120212
  5. XARELTO [Suspect]
     Route: 048
     Dates: start: 20120211, end: 20120212
  6. CEFOTAXIME [Concomitant]
  7. XARELTO [Suspect]
     Indication: THROMBOSIS PROPHYLAXIS
     Route: 048
  8. XARELTO [Suspect]
     Indication: HIP ARTHROPLASTY
     Route: 048
  9. KETOROLAC TROMETHAMINE [Concomitant]
  10. TRAMADOL HCL [Concomitant]
  11. PROMEDOL [Concomitant]
  12. NAROPIN [Concomitant]
     Dates: start: 20120210

REACTIONS (1)
  - MYOCARDIAL INFARCTION [None]
